FAERS Safety Report 4589297-5 (Version None)
Quarter: 2005Q1

REPORT INFORMATION
  Report Type: 
  Country: None (occurrence: None)
  Receive Date: 20050216
  Receipt Date: 20050209
  Transmission Date: 20050727
  Serious: Yes (Death)
  Sender: FDA-Public Use
  Company Number: 163-20785-05010347

PATIENT
  Age: 78 Year
  Sex: Female

DRUGS (3)
  1. THALOMID [Suspect]
     Indication: ACUTE LEUKAEMIA
     Dosage: 100 MG, DAILY, ORAL
     Route: 048
     Dates: start: 20041209
  2. TOPOTECAN (TOPOTECAN) [Suspect]
  3. CYTARABINE [Suspect]

REACTIONS (4)
  - ACUTE LEUKAEMIA [None]
  - ACUTE RESPIRATORY DISTRESS SYNDROME [None]
  - INFECTION [None]
  - NEOPLASM PROGRESSION [None]
